FAERS Safety Report 9262445 (Version 1)
Quarter: 2013Q2

REPORT INFORMATION
  Report Type: Spontaneous
  Country: US (occurrence: None)
  Receive Date: 20130426
  Receipt Date: 20130426
  Transmission Date: 20140414
  Serious: Yes (Death, Life-Threatening, Hospitalization, Disabling, Congenital Anomaly, Other)
  Sender: FDA-Public Use
  Company Number: None

PATIENT
  Age: 55 Year
  Sex: Female

DRUGS (1)
  1. PROMETHAZINE [Suspect]
     Dosage: 25 MG, EVERY 4 HOURS, IV BOLUS
     Route: 040
     Dates: start: 20071107, end: 20071108

REACTIONS (4)
  - Injection site pain [None]
  - Injection site swelling [None]
  - Compartment syndrome [None]
  - Wrong technique in drug usage process [None]
